FAERS Safety Report 9981669 (Version 1)
Quarter: 2020Q3

REPORT INFORMATION
  Report Type: Spontaneous
  Country: US (occurrence: None)
  Receive Date: 20140306
  Receipt Date: 20140306
  Transmission Date: 20201104
  Serious: Yes (Life-Threatening, Hospitalization, Other)
  Sender: FDA-Public Use
  Company Number: None

PATIENT
  Age: 58 Year
  Sex: Male
  Weight: 173 kg

DRUGS (10)
  1. ENOXAPARIN [Concomitant]
     Active Substance: ENOXAPARIN
  2. OXYCODONE [Concomitant]
     Active Substance: OXYCODONE
  3. MAFENIDE. [Suspect]
     Active Substance: MAFENIDE
     Indication: INFECTION PROPHYLAXIS
     Dosage: APPLY 1/16^ THICK LAYER, QD, TOPICAL
  4. ADVAIR HFA [Concomitant]
     Active Substance: FLUTICASONE PROPIONATE\SALMETEROL XINAFOATE
  5. ESOMEPRAZOLE. [Concomitant]
     Active Substance: ESOMEPRAZOLE MAGNESIUM
  6. DOCUSATE [Concomitant]
     Active Substance: DOCUSATE
  7. QUETIAPINE. [Concomitant]
     Active Substance: QUETIAPINE
  8. PERIDEX (CHLORHEXIDINE) [Concomitant]
  9. MIRALAX [Concomitant]
     Active Substance: POLYETHYLENE GLYCOL 3350
  10. INSULIN DETEMIR [Concomitant]
     Active Substance: INSULIN DETEMIR

REACTIONS (2)
  - Tubulointerstitial nephritis [None]
  - Acute kidney injury [None]

NARRATIVE: CASE EVENT DATE: 20140126
